FAERS Safety Report 10005012 (Version 1)
Quarter: 2014Q1

REPORT INFORMATION
  Report Type: Spontaneous
  Country: US (occurrence: US)
  Receive Date: 20140312
  Receipt Date: 20140312
  Transmission Date: 20141002
  Serious: No
  Sender: FDA-Public Use
  Company Number: US-VERTEX PHARMACEUTICALS INC-2014-001224

PATIENT
  Sex: Female

DRUGS (1)
  1. KALYDECO [Suspect]
     Indication: CYSTIC FIBROSIS

REACTIONS (2)
  - Liver function test abnormal [Unknown]
  - Off label use [Unknown]
